FAERS Safety Report 12836879 (Version 2)
Quarter: 2016Q4

REPORT INFORMATION
  Report Type: Report from Study
  Country: US (occurrence: US)
  Receive Date: 20161011
  Receipt Date: 20161101
  Transmission Date: 20170207
  Serious: Yes (Hospitalization)
  Sender: FDA-Public Use
  Company Number: US-B.I. PHARMACEUTICALS,INC./RIDGEFIELD-2015-BI-54089BP

PATIENT
  Sex: Female

DRUGS (4)
  1. ELIQUIS [Concomitant]
     Active Substance: APIXABAN
     Indication: PRODUCT USED FOR UNKNOWN INDICATION
     Route: 065
  2. OFEV [Suspect]
     Active Substance: NINTEDANIB
     Indication: IDIOPATHIC PULMONARY FIBROSIS
     Route: 048
  3. OFEV [Suspect]
     Active Substance: NINTEDANIB
     Route: 048
  4. OFEV [Suspect]
     Active Substance: NINTEDANIB
     Route: 048
     Dates: start: 20150813

REACTIONS (16)
  - Rhinorrhoea [Unknown]
  - Dyspnoea [Unknown]
  - Pulmonary thrombosis [Unknown]
  - Fall [Unknown]
  - Sinus operation [Unknown]
  - Dry mouth [Unknown]
  - Abdominal discomfort [Unknown]
  - Weight decreased [Unknown]
  - Nasal congestion [Unknown]
  - Sneezing [Unknown]
  - Fatigue [Unknown]
  - Diarrhoea [Unknown]
  - Cough [Unknown]
  - Productive cough [Unknown]
  - Kidney infection [Unknown]
  - Secretion discharge [Unknown]
